FAERS Safety Report 7332528-9 (Version None)
Quarter: 2011Q1

REPORT INFORMATION
  Report Type: 
  Country: None (occurrence: None)
  Receive Date: 20110304
  Receipt Date: 20110223
  Transmission Date: 20110831
  Serious: Yes (Other)
  Sender: FDA-Public Use
  Company Number: JP-ROCHE-763246

PATIENT
  Sex: Female

DRUGS (27)
  1. TOCILIZUMAB [Suspect]
     Route: 041
     Dates: start: 20100427, end: 20100427
  2. METOLATE [Concomitant]
     Dosage: FORM: PERORAL AGENT
     Route: 048
     Dates: end: 20090601
  3. TOCILIZUMAB [Suspect]
     Route: 041
     Dates: start: 20100316, end: 20100316
  4. PREDNISOLONE [Concomitant]
     Dosage: FORM: PERORAL AGENT
     Route: 048
  5. URIC [Concomitant]
     Dosage: FORM: PERORAL AGENT.
     Route: 048
     Dates: start: 20090805
  6. TOCILIZUMAB [Suspect]
     Indication: RHEUMATOID ARTHRITIS
     Route: 041
     Dates: start: 20090609, end: 20090609
  7. TOCILIZUMAB [Suspect]
     Route: 041
     Dates: start: 20100525, end: 20100525
  8. CRESTOR [Concomitant]
     Route: 048
     Dates: start: 20090806, end: 20091028
  9. SIMVASTATIN [Concomitant]
     Dosage: FORM: PERORAL AGENT.
     Route: 048
     Dates: start: 20091029
  10. TOCILIZUMAB [Suspect]
     Route: 041
     Dates: start: 20091124, end: 20091124
  11. AMLODIPINE [Concomitant]
     Dosage: DRUG REPORTED: AMLODIN OD.
     Route: 048
  12. TOCILIZUMAB [Suspect]
     Route: 041
     Dates: start: 20091027, end: 20091027
  13. TOCILIZUMAB [Suspect]
     Route: 041
     Dates: start: 20091222, end: 20091222
  14. TOCILIZUMAB [Suspect]
     Route: 041
     Dates: start: 20100202, end: 20100202
  15. AZULFIDINE [Concomitant]
     Dosage: FORM: PERORAL AGENT
     Route: 048
     Dates: end: 20090601
  16. MINOCYCLINE HYDROCHLORIDE [Concomitant]
     Dosage: FORM: PERORAL AGENT. DRUG REPORTED: MINOPHEN (MINOCYCLINE HYDROCHLORIDE)
     Route: 048
  17. MUCOSTA [Concomitant]
     Dosage: FORM: PERORAL AGENT
     Route: 048
  18. CRESTOR [Concomitant]
     Dosage: FORM: PERORAL AGENT.
     Route: 048
     Dates: end: 20090805
  19. LASIX [Concomitant]
     Dosage: FORM: PERORAL AGENT.
     Route: 048
  20. KREMEZIN [Concomitant]
     Dosage: FORM: PERORAL AGENT.
     Route: 048
  21. LANSOPRAZOLE [Concomitant]
     Dosage: DRUG REPORTED: TAPIZOL (LANSOPRAZOLE). FORM: PERORAL AGENT
     Route: 048
  22. DIPYRIDAMOLE [Concomitant]
     Dosage: DRUG REPORTED: PERCYSTAN (DIPYRIDAMOLE).  FORM: PERORAL AGENT.
     Route: 048
  23. ACTONEL [Concomitant]
     Route: 048
     Dates: start: 20091028
  24. TOCILIZUMAB [Suspect]
     Route: 041
     Dates: start: 20090707, end: 20090707
  25. TOCILIZUMAB [Suspect]
     Route: 041
     Dates: start: 20090804, end: 20090804
  26. TOCILIZUMAB [Suspect]
     Route: 041
     Dates: start: 20090901, end: 20090901
  27. TOCILIZUMAB [Suspect]
     Route: 041
     Dates: start: 20090929, end: 20090929

REACTIONS (1)
  - RENAL FAILURE CHRONIC [None]
